FAERS Safety Report 7446227-6 (Version None)
Quarter: 2011Q2

REPORT INFORMATION
  Report Type: 
  Country: None (occurrence: None)
  Receive Date: 20110429
  Receipt Date: 20110420
  Transmission Date: 20111010
  Serious: Yes (Death, Other)
  Sender: FDA-Public Use
  Company Number: JP-JNJFOC-20110308431

PATIENT
  Sex: Male
  Weight: 40 kg

DRUGS (11)
  1. TRANSAMIN [Concomitant]
     Indication: HAEMATURIA
     Route: 048
  2. ADONA [Concomitant]
     Indication: HAEMATURIA
     Dosage: 3 DF, 3 IN 1 DAY
     Route: 048
  3. MAGLAX [Concomitant]
     Indication: CONSTIPATION
     Dosage: 3 DF, 3 IN 1 DAY
     Route: 048
  4. TAMSULOSIN HCL [Concomitant]
     Indication: BENIGN PROSTATIC HYPERPLASIA
     Dosage: 1 DF, 1 IN 1 DAY
     Route: 048
  5. CRAVIT [Suspect]
     Indication: URINARY TRACT INFECTION
     Route: 048
  6. NICERGOLINE [Concomitant]
     Indication: PRODUCT USED FOR UNKNOWN INDICATION
     Dosage: 3 DF, 3 IN 1 DAY
     Route: 048
  7. DIOVAN [Concomitant]
     Indication: HYPERTENSION
     Route: 048
  8. ARICEPT [Concomitant]
     Indication: DEMENTIA
     Route: 048
  9. TOPHARMIN [Concomitant]
     Indication: PRODUCT USED FOR UNKNOWN INDICATION
     Dosage: 1 DF, 1 IN 1DAY
     Route: 048
  10. NEUROTROPIN [Concomitant]
     Indication: PRODUCT USED FOR UNKNOWN INDICATION
     Dosage: 4 DF, 2 IN 1 DAY
     Route: 048
  11. RISPERIDONE [Concomitant]
     Indication: DEPRESSION
     Route: 048

REACTIONS (7)
  - CARDIO-RESPIRATORY ARREST [None]
  - RESPIRATORY FAILURE [None]
  - OVERDOSE [None]
  - GAMMA-GLUTAMYLTRANSFERASE INCREASED [None]
  - PYREXIA [None]
  - RENAL FAILURE ACUTE [None]
  - HAEMATURIA [None]
